FAERS Safety Report 7939072-6 (Version None)
Quarter: 2011Q4

REPORT INFORMATION
  Report Type: 
  Country: None (occurrence: None)
  Receive Date: 20111124
  Receipt Date: 20111122
  Transmission Date: 20120403
  Serious: No
  Sender: FDA-Public Use
  Company Number: US-PFIZER INC-2011248016

PATIENT
  Sex: Male
  Weight: 111 kg

DRUGS (8)
  1. SUTENT [Suspect]
     Dosage: 12.5 MG, 1X/DAY, 4 WEEKS ON/2 WEEKS OFF
     Route: 048
  2. SIMVASTATIN [Concomitant]
     Dosage: 10 MG, UNK
     Route: 048
  3. SUTENT [Suspect]
     Dosage: 50 MG, 1X/DAY, 4 WEEKS ON, 2 WEEKS OFF
     Route: 048
  4. VITAMIN B COMPLEX CAP [Concomitant]
     Dosage: ONE DAILY 50 TAB PLUS
     Route: 048
  5. LISINOPRIL [Concomitant]
     Dosage: 20 MG, UNK
     Route: 048
  6. FISH OIL [Concomitant]
     Dosage: 1000 MG, UNK
     Route: 048
  7. ACETYLSALICYLIC ACID [Concomitant]
     Dosage: 325 MG, UNK
     Route: 048
  8. AMLODIPINE [Concomitant]
     Dosage: 10 MG, UNK

REACTIONS (4)
  - PLATELET COUNT DECREASED [None]
  - WHITE BLOOD CELL COUNT DECREASED [None]
  - CHEILITIS [None]
  - DIARRHOEA [None]
